FAERS Safety Report 22039077 (Version 7)
Quarter: 2023Q2

REPORT INFORMATION
  Report Type: Spontaneous
  Country: US (occurrence: US)
  Receive Date: 20230227
  Receipt Date: 20230613
  Transmission Date: 20230721
  Serious: Yes (Other)
  Sender: FDA-Public Use
  Company Number: US-BRISTOL-MYERS SQUIBB COMPANY-2023-027715

PATIENT
  Age: 75 Year
  Sex: Female

DRUGS (2)
  1. LENALIDOMIDE [Suspect]
     Active Substance: LENALIDOMIDE
     Indication: Plasma cell myeloma
     Dosage: TAKE 1 CAPSULE (5 MG TOTAL) BY MOUTH ONCE DAILY FOR 14 DAYS, THEN 7 OFF FOR 21 DAY CYCLE
     Route: 048
     Dates: start: 20221028
  2. LENALIDOMIDE [Suspect]
     Active Substance: LENALIDOMIDE
     Indication: Chemotherapy

REACTIONS (15)
  - Fall [Recovering/Resolving]
  - Arthralgia [Not Recovered/Not Resolved]
  - Off label use [Unknown]
  - Urinary tract infection [Unknown]
  - Oedema peripheral [Recovered/Resolved]
  - Fatigue [Recovering/Resolving]
  - Somnolence [Recovering/Resolving]
  - Dyspnoea exertional [Recovering/Resolving]
  - Diarrhoea [Recovering/Resolving]
  - Depressed mood [Recovering/Resolving]
  - Circulatory collapse [Recovering/Resolving]
  - Foot fracture [Recovered/Resolved]
  - Peripheral swelling [Not Recovered/Not Resolved]
  - Fluid retention [Unknown]
  - Weight decreased [Unknown]

NARRATIVE: CASE EVENT DATE: 20230218
